FAERS Safety Report 9815691 (Version 1)
Quarter: 2014Q1

REPORT INFORMATION
  Report Type: Spontaneous
  Country: US (occurrence: US)
  Receive Date: 20140114
  Receipt Date: 20140114
  Transmission Date: 20141002
  Serious: Yes (Other)
  Sender: FDA-Public Use
  Company Number: US-PFIZER INC-2014003718

PATIENT
  Sex: Male

DRUGS (1)
  1. CHANTIX [Suspect]
     Indication: SMOKING CESSATION THERAPY
     Dosage: UNK
     Dates: start: 2013

REACTIONS (7)
  - Prostatic disorder [Unknown]
  - Cardiac disorder [Unknown]
  - Nausea [Unknown]
  - Stress [Unknown]
  - Abdominal discomfort [Unknown]
  - Abnormal dreams [Unknown]
  - Drug ineffective [Unknown]
